FAERS Safety Report 4541063-2 (Version None)
Quarter: 2004Q4

REPORT INFORMATION
  Report Type: 
  Country: None (occurrence: None)
  Receive Date: 20041228
  Receipt Date: 20041221
  Transmission Date: 20050328
  Serious: Yes (Life-Threatening)
  Sender: FDA-Public Use
  Company Number: OMPQ-NO-0412S-1440

PATIENT
  Age: 51 Year
  Sex: Male
  Weight: 83 kg

DRUGS (6)
  1. OMNIPAQUE 140 [Suspect]
     Indication: DRUG USE FOR UNKNOWN INDICATION
     Dosage: 100 ML, SINGLE DOSE, CORONARY
     Dates: start: 20041214, end: 20041214
  2. SODIUM CHLORIDE [Concomitant]
  3. HEPARIN [Concomitant]
  4. NITROGLYCERIN [Concomitant]
  5. PROMETAZINE HYDROCHLORIDE (PIPOLPHEN) [Concomitant]
  6. SODIUM CHLORIDE [Concomitant]

REACTIONS (7)
  - CHEST PAIN [None]
  - CIRCULATORY COLLAPSE [None]
  - CONTRAST MEDIA REACTION [None]
  - HYPERHIDROSIS [None]
  - HYPOTENSION [None]
  - NAUSEA [None]
  - PALLOR [None]
